FAERS Safety Report 10066230 (Version 2)
Quarter: 2014Q2

REPORT INFORMATION
  Report Type: Report from Study
  Country: US (occurrence: US)
  Receive Date: 20140408
  Receipt Date: 20140411
  Transmission Date: 20141212
  Serious: Yes (Hospitalization, Disabling)
  Sender: FDA-Public Use
  Company Number: US-JNJFOC-20140402859

PATIENT
  Age: 17 Year
  Sex: Male
  Weight: 53.9 kg

DRUGS (6)
  1. REMICADE [Suspect]
     Indication: CROHN^S DISEASE
     Route: 042
     Dates: start: 20101205, end: 20111025
  2. HUMIRA [Concomitant]
     Route: 065
     Dates: start: 20111111
  3. MULTIVITAMINS [Concomitant]
     Route: 065
  4. PRENATAL VITAMINS [Concomitant]
     Route: 065
  5. ACETAMINOPHEN [Concomitant]
     Route: 065
  6. VITAMIN D [Concomitant]
     Route: 065

REACTIONS (1)
  - Crohn^s disease [Recovered/Resolved]
